FAERS Safety Report 6165495-4 (Version None)
Quarter: 2009Q2

REPORT INFORMATION
  Report Type: 
  Country: None (occurrence: None)
  Receive Date: 20090423
  Receipt Date: 20090417
  Transmission Date: 20091009
  Serious: No
  Sender: FDA-Public Use
  Company Number: US-B.I. PHARMACEUTICALS,INC./RIDGEFIELD-2009-BP-05012BP

PATIENT
  Sex: Female

DRUGS (8)
  1. ZANTAC 150 [Suspect]
  2. CENTRUM [Suspect]
     Dates: start: 20090414
  3. SYNTHROID [Concomitant]
     Indication: THYROID DISORDER
     Route: 048
  4. LEXAPRO [Concomitant]
     Indication: ANTIDEPRESSANT THERAPY
     Route: 048
  5. ONE A DAY VITAMIN [Concomitant]
     Route: 048
  6. DARVOCET [Concomitant]
     Indication: TEMPOROMANDIBULAR JOINT SYNDROME
     Route: 048
  7. DARVOCET [Concomitant]
     Indication: PAIN
  8. ROBAXIN [Concomitant]
     Indication: MUSCLE RELAXANT THERAPY
     Route: 048

REACTIONS (7)
  - ABDOMINAL DISCOMFORT [None]
  - ABDOMINAL PAIN UPPER [None]
  - ANOREXIA [None]
  - HEADACHE [None]
  - MEDICATION ERROR [None]
  - NERVOUSNESS [None]
  - WEIGHT DECREASED [None]
